FAERS Safety Report 8325686-0 (Version None)
Quarter: 2012Q2

REPORT INFORMATION
  Report Type: 
  Country: None (occurrence: None)
  Receive Date: 20120501
  Receipt Date: 20120501
  Transmission Date: 20120825
  Serious: Yes (Other)
  Sender: FDA-Public Use
  Company Number: None

PATIENT
  Age: 56 Year
  Sex: Female
  Weight: 67.131 kg

DRUGS (2)
  1. KETAMINE HCL [Suspect]
     Indication: ANAESTHESIA
     Dates: start: 20120425, end: 20120425
  2. KETAMINE HCL [Suspect]
     Indication: TOOTH EXTRACTION
     Dates: start: 20120425, end: 20120425

REACTIONS (4)
  - CLONUS [None]
  - CONVULSION [None]
  - BALANCE DISORDER [None]
  - FATIGUE [None]
